FAERS Safety Report 18327676 (Version 3)
Quarter: 2021Q1

REPORT INFORMATION
  Report Type: Report from Study
  Country: CA (occurrence: CA)
  Receive Date: 20200929
  Receipt Date: 20210209
  Transmission Date: 20210419
  Serious: Yes (Other)
  Sender: FDA-Public Use
  Company Number: CA-JNJFOC-20200937124

PATIENT
  Age: 50 Year
  Sex: Female

DRUGS (1)
  1. REMICADE [Suspect]
     Active Substance: INFLIXIMAB
     Indication: RHEUMATOID ARTHRITIS
     Dosage: LAST DOSE ON SEP?2020.
     Route: 042
     Dates: start: 20040507

REACTIONS (3)
  - Malignant melanoma [Unknown]
  - Skin lesion [Unknown]
  - Thyroid mass [Unknown]

NARRATIVE: CASE EVENT DATE: 20200811
